FAERS Safety Report 6517776-X (Version None)
Quarter: 2009Q4

REPORT INFORMATION
  Report Type: 
  Country: None (occurrence: None)
  Receive Date: 20091224
  Receipt Date: 20091215
  Transmission Date: 20100525
  Serious: Yes (Hospitalization)
  Sender: FDA-Public Use
  Company Number: JP-SANOFI-AVENTIS-2009SA010431

PATIENT
  Age: 71 Year
  Sex: Female

DRUGS (5)
  1. ELPLAT [Suspect]
     Indication: LARGE INTESTINE CARCINOMA
     Route: 041
     Dates: start: 20091208, end: 20091208
  2. CALCIUM LEVOFOLINATE [Suspect]
     Indication: LARGE INTESTINE CARCINOMA
     Route: 041
     Dates: start: 20091208, end: 20091208
  3. FLUOROURACIL [Suspect]
     Indication: LARGE INTESTINE CARCINOMA
     Route: 040
     Dates: start: 20091208, end: 20091208
  4. FLUOROURACIL [Suspect]
     Route: 041
     Dates: start: 20091208, end: 20091208
  5. AVASTIN [Suspect]
     Indication: LARGE INTESTINE CARCINOMA
     Route: 041
     Dates: start: 20081208, end: 20081208

REACTIONS (1)
  - ALTERED STATE OF CONSCIOUSNESS [None]
